FAERS Safety Report 10955737 (Version 2)
Quarter: 2015Q1

REPORT INFORMATION
  Report Type: Spontaneous
  Country: US (occurrence: None)
  Receive Date: 20150226
  Receipt Date: 20150226
  Transmission Date: 20150721
  Serious: Yes (Hospitalization)
  Sender: FDA-Public Use
  Company Number: TAP2008Q00699

PATIENT
  Age: 58 Year
  Sex: Female
  Weight: 86.4 kg

DRUGS (8)
  1. CITRUCEL (METHYLCELLULOSE) [Concomitant]
  2. PREMARIN [Concomitant]
     Active Substance: ESTROGENS, CONJUGATED
  3. MOBIC [Concomitant]
     Active Substance: MELOXICAM
  4. DESIPRAMINE (DESIPRAMINE) (DESIPRAMINE) [Concomitant]
     Active Substance: DESIPRAMINE
  5. PREVACID [Suspect]
     Active Substance: LANSOPRAZOLE
     Indication: GASTROOESOPHAGEAL REFLUX DISEASE
     Route: 048
     Dates: start: 20000114
  6. AMITIZA [Suspect]
     Active Substance: LUBIPROSTONE
     Indication: CONSTIPATION
     Route: 048
     Dates: start: 20080515, end: 20080629
  7. LISINOPRIL HCTZ (HYDROCHLOROTHIAZIDE, LISINOPRIL) [Concomitant]
  8. KLONOPIN [Concomitant]
     Active Substance: CLONAZEPAM

REACTIONS (15)
  - Chills [None]
  - Nausea [None]
  - Abdominal distension [None]
  - Tremor [None]
  - Weight decreased [None]
  - Condition aggravated [None]
  - Rectal prolapse [None]
  - Diarrhoea [None]
  - Constipation [None]
  - Headache [None]
  - Abdominal pain upper [None]
  - Hyperhidrosis [None]
  - Joint stiffness [None]
  - Syncope [None]
  - Dehydration [None]

NARRATIVE: CASE EVENT DATE: 20051128
